FAERS Safety Report 15734406 (Version 1)
Quarter: 2018Q4

REPORT INFORMATION
  Report Type: Spontaneous
  Country: FR (occurrence: FR)
  Receive Date: 20181218
  Receipt Date: 20181218
  Transmission Date: 20190205
  Serious: Yes (Other)
  Sender: FDA-Public Use
  Company Number: FR-ACTELION-A-CH2018-183405

PATIENT
  Age: 88 Year
  Sex: Female
  Weight: 67.1 kg

DRUGS (1)
  1. TRACLEER [Suspect]
     Active Substance: BOSENTAN
     Indication: SCLERODERMA
     Dosage: 125 MG, QD
     Route: 048
     Dates: start: 20181107, end: 20181112

REACTIONS (3)
  - Eosinophil count increased [Not Recovered/Not Resolved]
  - Hepatitis [Recovering/Resolving]
  - Acute kidney injury [Recovering/Resolving]

NARRATIVE: CASE EVENT DATE: 20181112
